FAERS Safety Report 11145548 (Version 3)
Quarter: 2018Q4

REPORT INFORMATION
  Report Type: Report from Study
  Country: US (occurrence: US)
  Receive Date: 20150528
  Receipt Date: 20181108
  Transmission Date: 20190204
  Serious: Yes (Hospitalization, Other)
  Sender: FDA-Public Use
  Company Number: US-SA-2015SA072069

PATIENT
  Age: 21 Year
  Sex: Male

DRUGS (1)
  1. AGALSIDASE BETA [Suspect]
     Active Substance: AGALSIDASE BETA
     Indication: FABRY^S DISEASE
     Dosage: UNK UNK,QOW
     Route: 041
     Dates: start: 200610

REACTIONS (7)
  - Condition aggravated [Unknown]
  - Suicidal ideation [Recovering/Resolving]
  - Gastrointestinal disorder [Unknown]
  - Anger [Recovering/Resolving]
  - Egocentrism [Recovering/Resolving]
  - Depression [Recovering/Resolving]
  - Pain in extremity [Unknown]
